FAERS Safety Report 19985881 (Version 1)
Quarter: 2021Q4

REPORT INFORMATION
  Report Type: Spontaneous
  Country: US (occurrence: US)
  Receive Date: 20211021
  Receipt Date: 20211021
  Transmission Date: 20220303
  Serious: Yes (Hospitalization)
  Sender: FDA-Public Use
  Company Number: None

PATIENT
  Age: 73 Year
  Sex: Male

DRUGS (26)
  1. HUMIRA [Suspect]
     Active Substance: ADALIMUMAB
     Indication: Psoriatic arthropathy
     Dosage: ?          OTHER DOSE:1 PEN;
     Route: 058
     Dates: start: 20210806
  2. AMOXICILLIN\CLAVULANATE POTASSIUM [Concomitant]
     Active Substance: AMOXICILLIN\CLAVULANATE POTASSIUM
  3. BYDUREON BC [Concomitant]
  4. CEPHALXEIN [Concomitant]
  5. CIPROFLOXACIN [Concomitant]
     Active Substance: CIPROFLOXACIN
  6. CYCLOSET [Concomitant]
     Active Substance: BROMOCRIPTINE MESYLATE
  7. DEXZMETHASON ELX [Concomitant]
  8. DULOXETINE [Concomitant]
     Active Substance: DULOXETINE
  9. FARXIGA [Concomitant]
     Active Substance: DAPAGLIFLOZIN PROPANEDIOL
  10. FLUNOCINIDE [Concomitant]
  11. FOLIC ACID [Concomitant]
     Active Substance: FOLIC ACID
  12. FUROSEMIDE [Concomitant]
     Active Substance: FUROSEMIDE
  13. GAPBAPENTIN [Concomitant]
  14. ACETAMINOPHEN\HYDROCODONE [Concomitant]
     Active Substance: ACETAMINOPHEN\HYDROCODONE
  15. LISINOPRIL [Concomitant]
     Active Substance: LISINOPRIL
  16. LYUMJEV KWPN [Concomitant]
  17. METFORMIN [Concomitant]
     Active Substance: METFORMIN HYDROCHLORIDE
  18. NITROFURANTOIN [Concomitant]
     Active Substance: NITROFURANTOIN
  19. NYSTATIN [Concomitant]
     Active Substance: NYSTATIN
  20. PANTOPAZOLE [Concomitant]
  21. PROPRANOLOL [Concomitant]
     Active Substance: PROPRANOLOL HYDROCHLORIDE
  22. ROSUVASTATIN [Concomitant]
     Active Substance: ROSUVASTATIN
  23. TAMSULOSIN [Concomitant]
     Active Substance: TAMSULOSIN
  24. TOUJEO SOLO [Concomitant]
  25. TRAMADOL HCL [Concomitant]
     Active Substance: TRAMADOL HYDROCHLORIDE
  26. ZINC LOZ [Concomitant]

REACTIONS (2)
  - Sepsis [None]
  - Blood disorder [None]

NARRATIVE: CASE EVENT DATE: 20211007
